FAERS Safety Report 5573231-5 (Version None)
Quarter: 2007Q4

REPORT INFORMATION
  Report Type: 
  Country: None (occurrence: None)
  Receive Date: 20071224
  Receipt Date: 20071217
  Transmission Date: 20080405
  Serious: Yes (Hospitalization)
  Sender: FDA-Public Use
  Company Number: KR-SANOFI-SYNTHELABO-A01200714178

PATIENT
  Sex: Male

DRUGS (6)
  1. DOXAZOSIN MESYLATE [Concomitant]
     Dates: start: 20071105
  2. MEGESTROL ACETATE [Concomitant]
     Dates: start: 20071119
  3. METOCLOPRAMIDE [Concomitant]
     Dates: start: 20071120
  4. CETUXIMAB [Suspect]
     Dosage: (668/417 MG)
     Route: 042
     Dates: start: 20071105, end: 20071105
  5. XELODA [Suspect]
     Route: 048
     Dates: start: 20071105
  6. OXALIPLATIN [Suspect]
     Route: 042
     Dates: start: 20071105, end: 20071105

REACTIONS (1)
  - GASTROENTERITIS [None]
